FAERS Safety Report 6963145-8 (Version None)
Quarter: 2010Q3

REPORT INFORMATION
  Report Type: 
  Country: None (occurrence: None)
  Receive Date: 20100823
  Receipt Date: 20100621
  Transmission Date: 20110219
  Serious: No
  Sender: FDA-Public Use
  Company Number: 012424

PATIENT
  Sex: Female
  Weight: 51 kg

DRUGS (1)
  1. CIMZIA [Suspect]
     Indication: CROHN'S DISEASE
     Dosage: (400 MG1X/4 WEEKS SUBCUTANEOUS)
     Route: 058
     Dates: start: 20100427

REACTIONS (3)
  - HYPERSENSITIVITY [None]
  - NASOPHARYNGITIS [None]
  - RECTAL HAEMORRHAGE [None]
